FAERS Safety Report 5050892-0 (Version None)
Quarter: 2006Q3

REPORT INFORMATION
  Report Type: 
  Country: None (occurrence: None)
  Receive Date: 20060710
  Receipt Date: 20060626
  Transmission Date: 20061208
  Serious: Yes (Death)
  Sender: FDA-Public Use
  Company Number: 2006080880

PATIENT
  Age: 49 Year
  Sex: Female
  Weight: 96 kg

DRUGS (10)
  1. DOXORUBICIN HCL [Suspect]
     Indication: ILL-DEFINED DISORDER
     Dosage: INTRAVENOUS
     Route: 042
     Dates: start: 20060119, end: 20060328
  2. CYTARABINE [Suspect]
     Indication: ILL-DEFINED DISORDER
     Dosage: INTRAVENOUS
     Route: 042
     Dates: start: 20060118, end: 20060503
  3. CYTARABINE [Suspect]
     Indication: ILL-DEFINED DISORDER
     Dosage: INTRAVENOUS
     Route: 042
     Dates: start: 20060118, end: 20060503
  4. ETOPOSIDE [Suspect]
     Indication: ILL-DEFINED DISORDER
     Dosage: INTRAVENOUS
     Route: 042
     Dates: start: 20060429, end: 20060503
  5. RITUXIMAB (RITUXIMAB) [Suspect]
     Indication: ILL-DEFINED DISORDER
     Dosage: INTRAVENOUS
     Route: 042
     Dates: start: 20060119, end: 20060428
  6. METHOTREXATE [Suspect]
     Indication: ILL-DEFINED DISORDER
     Dosage: INTRATHECAL
     Route: 037
     Dates: start: 20060118, end: 20060329
  7. VINCRISTINE SULFATE [Concomitant]
  8. OFLOXACIN [Concomitant]
  9. AMOXYCILLINE/CLAVULANIC ACID (AMOXYCILLINE, CLAVULANIC ACID) [Concomitant]
  10. PREDNISONE TAB [Concomitant]

REACTIONS (7)
  - BONE MARROW FAILURE [None]
  - CANDIDA SEPSIS [None]
  - CEREBRAL HAEMORRHAGE [None]
  - ENTEROBACTER SEPSIS [None]
  - HYPERTHERMIA [None]
  - INFLAMMATION [None]
  - PYREXIA [None]
